FAERS Safety Report 20093883 (Version 8)
Quarter: 2022Q2

REPORT INFORMATION
  Report Type: Spontaneous
  Country: JP (occurrence: JP)
  Receive Date: 20211121
  Receipt Date: 20220617
  Transmission Date: 20220721
  Serious: Yes (Life-Threatening, Hospitalization, Other)
  Sender: FDA-Public Use
  Company Number: JP-BRISTOL-MYERS SQUIBB COMPANY-BMS-2021-122509

PATIENT
  Age: 59 Year
  Sex: Male
  Weight: 49.3 kg

DRUGS (16)
  1. YERVOY [Suspect]
     Active Substance: IPILIMUMAB
     Indication: Non-small cell lung cancer recurrent
     Dosage: 1 MG/KG (61 MG)
     Route: 041
     Dates: start: 20211029, end: 20211029
  2. YERVOY [Suspect]
     Active Substance: IPILIMUMAB
  3. OPDIVO [Suspect]
     Active Substance: NIVOLUMAB
     Indication: Non-small cell lung cancer recurrent
     Dosage: 360 MG
     Route: 041
     Dates: start: 20211029, end: 20211029
  4. CARBOPLATIN [Suspect]
     Active Substance: CARBOPLATIN
     Indication: Non-small cell lung cancer recurrent
     Route: 041
     Dates: start: 20211008, end: 20211008
  5. CARBOPLATIN [Suspect]
     Active Substance: CARBOPLATIN
     Route: 041
     Dates: start: 20211029, end: 20211029
  6. PACLITAXEL [Suspect]
     Active Substance: PACLITAXEL
     Indication: Non-small cell lung cancer recurrent
     Route: 041
     Dates: start: 20211008, end: 20211015
  7. PACLITAXEL [Suspect]
     Active Substance: PACLITAXEL
     Route: 041
     Dates: start: 20211029, end: 20211029
  8. HALOPERIDOL [Concomitant]
     Active Substance: HALOPERIDOL
     Indication: Prophylaxis
     Dosage: 1 MILLILITER, EVERYDAY
     Route: 041
     Dates: start: 20211102, end: 20211111
  9. LANSOPRAZOLE [Concomitant]
     Active Substance: LANSOPRAZOLE
     Indication: Prophylaxis
     Dosage: 30 MG, Q12H
     Route: 041
     Dates: start: 20211102, end: 20211111
  10. HALOPERIDOL [Concomitant]
     Active Substance: HALOPERIDOL
     Indication: Prophylaxis
     Route: 041
     Dates: start: 20211102, end: 20211111
  11. HYDROXYZINE HYDROCHLORIDE [Concomitant]
     Active Substance: HYDROXYZINE HYDROCHLORIDE
     Indication: Prophylaxis
     Route: 041
     Dates: start: 20211102, end: 20211111
  12. Diphenhydramine Hydrochloride Diprophylline [Concomitant]
     Indication: Prophylaxis
     Route: 041
     Dates: start: 20211101, end: 20211111
  13. LANSOPRAZOLE [Concomitant]
     Active Substance: LANSOPRAZOLE
     Indication: Prophylaxis
     Route: 041
     Dates: start: 20211102, end: 20211111
  14. MORPHINE HYDROCHLORIDE [Concomitant]
     Active Substance: MORPHINE HYDROCHLORIDE
     Indication: Non-small cell lung cancer recurrent
     Route: 041
     Dates: start: 20211102, end: 20211111
  15. HYDROXYZINE HYDROCHLORIDE [Concomitant]
     Active Substance: HYDROXYZINE HYDROCHLORIDE
     Indication: Prophylaxis
     Dosage: 1 MILLILITER, EVERYDAY
     Route: 041
     Dates: start: 20211102, end: 20211111
  16. TRAVELMIN [Concomitant]
     Indication: Prophylaxis
     Dosage: 1 MILLILITER, Q12H
     Route: 041
     Dates: start: 20211101, end: 20211111

REACTIONS (5)
  - Rash [Unknown]
  - Immune-mediated encephalitis [Recovering/Resolving]
  - Altered state of consciousness [Recovering/Resolving]
  - Acute kidney injury [Recovering/Resolving]
  - Immune-mediated dermatitis [Unknown]

NARRATIVE: CASE EVENT DATE: 20211111
